FAERS Safety Report 9862115 (Version 1)
Quarter: 2014Q1

REPORT INFORMATION
  Report Type: Spontaneous
  Country: GB (occurrence: GB)
  Receive Date: 20140203
  Receipt Date: 20140203
  Transmission Date: 20141002
  Serious: Yes (Disabling)
  Sender: FDA-Public Use
  Company Number: GB-SA-2014SA010664

PATIENT
  Age: 84 Year
  Sex: Male
  Weight: 63.2 kg

DRUGS (20)
  1. CLOPIDOGREL BISULFATE [Suspect]
     Indication: PRODUCT USED FOR UNKNOWN INDICATION
     Route: 048
     Dates: start: 20140106, end: 20140113
  2. OMEPRAZOLE [Concomitant]
     Dates: start: 20130930
  3. RAMIPRIL [Concomitant]
     Dates: start: 20130930
  4. ALLOPURINOL [Concomitant]
     Dates: start: 20130930
  5. ATORVASTATIN [Concomitant]
     Dates: start: 20130930, end: 20131028
  6. ATORVASTATIN [Concomitant]
     Dates: start: 20131203, end: 20131231
  7. BUDESONIDE [Concomitant]
     Dates: start: 20130930
  8. ALENDRONIC ACID [Concomitant]
     Dates: start: 20131011
  9. CALCIUM CARBONATE [Concomitant]
     Dates: start: 20131011, end: 20131110
  10. CALCIUM CARBONATE [Concomitant]
     Dates: start: 20131231
  11. PREDNISOLONE [Concomitant]
     Dates: start: 20131011, end: 20140102
  12. SALBUTAMOL SULFATE [Concomitant]
     Dates: start: 20131105, end: 20131203
  13. SALBUTAMOL SULFATE [Concomitant]
     Dates: start: 20131231
  14. NOVOMIX [Concomitant]
     Dates: start: 20131105, end: 20131203
  15. NOVOMIX [Concomitant]
     Dates: start: 20131231
  16. ASPIRIN [Concomitant]
     Dates: start: 20131105
  17. PARACETAMOL [Concomitant]
     Dates: start: 20131203, end: 20131215
  18. PARACETAMOL [Concomitant]
     Dates: start: 20131231, end: 20140112
  19. GLYCERYL TRINITRATE [Concomitant]
     Dates: start: 20131217, end: 20140114
  20. WARFARIN SODIUM [Concomitant]
     Dates: start: 20131230

REACTIONS (3)
  - Balance disorder [Recovered/Resolved]
  - Dizziness postural [Recovered/Resolved]
  - Tension headache [Recovered/Resolved]
